FAERS Safety Report 6618679-2 (Version None)
Quarter: 2010Q1

REPORT INFORMATION
  Report Type: 
  Country: None (occurrence: None)
  Receive Date: 20100308
  Receipt Date: 20100222
  Transmission Date: 20100710
  Serious: Yes (Hospitalization)
  Sender: FDA-Public Use
  Company Number: DE-ELI_LILLY_AND_COMPANY-DE201003001692

PATIENT
  Sex: Female

DRUGS (7)
  1. RALOXIFENE HYDROCHLORIDE [Suspect]
     Indication: OSTEOPOROSIS
     Dosage: 60 MG, DAILY (1/D)
     Dates: start: 20050608
  2. KALCIPOS-D [Concomitant]
  3. RISPERDAL [Concomitant]
     Dosage: 0.5 MG, UNK
  4. LEVOTHYROXINE SODIUM [Concomitant]
     Dosage: 100 UG, UNK
  5. HYDROCORTISONE [Concomitant]
     Dosage: 10 MG, UNK
  6. ALVEDON [Concomitant]
     Dosage: 100 MG, UNK
  7. TRAMADOL HCL [Concomitant]
     Dosage: 50 MG, UNK

REACTIONS (3)
  - FATIGUE [None]
  - PNEUMONIA ASPIRATION [None]
  - PULMONARY EMBOLISM [None]
